FAERS Safety Report 19182516 (Version 2)
Quarter: 2021Q2

REPORT INFORMATION
  Report Type: Report from Study
  Country: ES (occurrence: ES)
  Receive Date: 20210427
  Receipt Date: 20210608
  Transmission Date: 20210717
  Serious: Yes (Life-Threatening, Other)
  Sender: FDA-Public Use
  Company Number: ES-BEH-2021130839

PATIENT
  Age: 57 Year
  Sex: Male
  Weight: 78 kg

DRUGS (5)
  1. PREDNISONE [PREDNISONE ACETATE] [Concomitant]
     Active Substance: PREDNISONE ACETATE
     Dosage: UNK
     Route: 065
  2. CYCLOPHOSPHAMIDE. [Concomitant]
     Active Substance: CYCLOPHOSPHAMIDE
     Route: 065
  3. HUMAN FIBRINOGEN FACTOR I (GENERIC) [Suspect]
     Active Substance: FIBRINOGEN HUMAN
     Indication: HYPOFIBRINOGENAEMIA
     Dosage: 1 GRAM, TOT
     Route: 042
     Dates: start: 20210316, end: 20210317
  4. HUMAN FIBRINOGEN FACTOR I (GENERIC) [Suspect]
     Active Substance: FIBRINOGEN HUMAN
     Indication: PROCEDURAL HAEMORRHAGE
     Dosage: 8 GRAM, TOT
     Route: 042
     Dates: start: 20210316, end: 20210317
  5. HUMAN FIBRINOGEN FACTOR I (GENERIC) [Suspect]
     Active Substance: FIBRINOGEN HUMAN
     Dosage: 4 GRAM, TOT
     Route: 042
     Dates: start: 20210316, end: 20210317

REACTIONS (7)
  - Off label use [Unknown]
  - Hypovolaemia [Recovered/Resolved]
  - No adverse event [Unknown]
  - Arterial injury [Recovered/Resolved]
  - Reperfusion injury [Recovered/Resolved]
  - Procedural haemorrhage [Recovered/Resolved]
  - Hyperfibrinolysis [Recovered/Resolved]

NARRATIVE: CASE EVENT DATE: 20210316
